FAERS Safety Report 11976358 (Version 2)
Quarter: 2016Q1

REPORT INFORMATION
  Report Type: Report from Study
  Country: US (occurrence: US)
  Receive Date: 20160129
  Receipt Date: 20160204
  Transmission Date: 20160526
  Serious: Yes (Hospitalization)
  Sender: FDA-Public Use
  Company Number: US-ROCHE-1642564

PATIENT
  Sex: Female

DRUGS (18)
  1. INFLUENZA VIRUS VACCINE [Concomitant]
     Active Substance: INFLUENZA VIRUS VACCINE
     Indication: PROPHYLAXIS
     Route: 030
     Dates: start: 20121209, end: 20121209
  2. FLAGYL [Concomitant]
     Active Substance: METRONIDAZOLE\METRONIDAZOLE HYDROCHLORIDE
     Indication: ANAL ABSCESS
     Route: 048
     Dates: start: 20130627, end: 20130706
  3. METHOTREXATE [Concomitant]
     Active Substance: METHOTREXATE
     Indication: RHEUMATOID ARTHRITIS
     Route: 048
     Dates: start: 201109, end: 20130307
  4. ADVIL [Concomitant]
     Active Substance: IBUPROFEN
     Indication: RHEUMATOID ARTHRITIS
  5. CIPRO [Concomitant]
     Active Substance: CIPROFLOXACIN HYDROCHLORIDE
     Indication: ANAL ABSCESS
     Route: 048
     Dates: start: 20130627, end: 20130706
  6. MUCINEX DM [Concomitant]
     Active Substance: DEXTROMETHORPHAN HYDROBROMIDE\GUAIFENESIN
     Indication: UPPER RESPIRATORY TRACT INFECTION
     Route: 048
     Dates: start: 20131117, end: 20131119
  7. DEXAMETHASON [Concomitant]
     Active Substance: DEXAMETHASONE
     Indication: PREMEDICATION
     Route: 042
     Dates: start: 20151026, end: 20151204
  8. METHOTREXATE [Concomitant]
     Active Substance: METHOTREXATE
     Route: 048
     Dates: start: 20130308, end: 20150720
  9. CVS HEMORRHOIDAL SUPPOSITORIES [Concomitant]
     Indication: HAEMATOCHEZIA
     Route: 050
     Dates: start: 20130503, end: 20130506
  10. DOXYCYCLINE. [Concomitant]
     Active Substance: DOXYCYCLINE
     Indication: ARTHROPOD BITE
     Route: 048
     Dates: start: 20140408
  11. ANUCORT-HC [Concomitant]
     Active Substance: HYDROCORTISONE ACETATE
     Indication: HAEMATOCHEZIA
     Route: 050
     Dates: start: 20130522, end: 20130621
  12. LISINOPRIL. [Concomitant]
     Active Substance: LISINOPRIL
     Route: 048
  13. FOLIC ACID. [Concomitant]
     Active Substance: FOLIC ACID
     Indication: RHEUMATOID ARTHRITIS
     Route: 048
     Dates: start: 20110516, end: 20150720
  14. DESITIN CREAMY [Concomitant]
     Indication: HAEMATOCHEZIA
     Route: 061
     Dates: start: 20130124
  15. ETANERCEPT [Suspect]
     Active Substance: ETANERCEPT
     Indication: RHEUMATOID ARTHRITIS
     Dosage: THE LAST DOSE OF ETANERCEPT 50MG PRIOR TO SAE SQUAMOUS CELL CARCINOMA OF ANUS ON 10/AUG/2015
     Route: 058
  16. PROCTOZONE-HC [Concomitant]
     Indication: HAEMATOCHEZIA
     Route: 061
     Dates: start: 20130522, end: 20130621
  17. NYQUIL COLD AND FLU [Concomitant]
     Active Substance: ACETAMINOPHEN\DEXTROMETHORPHAN HYDROBROMIDE\DOXYLAMINE SUCCINATE
     Indication: UPPER RESPIRATORY TRACT INFECTION
     Route: 048
     Dates: start: 20131105, end: 20131119
  18. ADVIL [Concomitant]
     Active Substance: IBUPROFEN
     Indication: OSTEOARTHRITIS
     Route: 048
     Dates: start: 2010, end: 20150720

REACTIONS (1)
  - Anal squamous cell carcinoma [Not Recovered/Not Resolved]
